FAERS Safety Report 9715817 (Version 3)
Quarter: 2013Q4

REPORT INFORMATION
  Report Type: Report from Study
  Country: US (occurrence: US)
  Receive Date: 20131127
  Receipt Date: 20131227
  Transmission Date: 20140711
  Serious: Yes (Death, Life-Threatening, Hospitalization)
  Sender: FDA-Public Use
  Company Number: US-PFIZER INC-2013334846

PATIENT
  Age: 68 Year
  Sex: Female
  Weight: 85.1 kg

DRUGS (3)
  1. CELECOXIB [Suspect]
     Indication: NON-SMALL CELL LUNG CANCER
     Dosage: 400 MG ORALLY TWICE DAILY ON DAYS 1 TO 21; CYCLE 7+: CELECOXIB400 MG ORALLY TWICE DAILY ON
     Route: 048
     Dates: start: 20130806, end: 20131112
  2. CARBOPLATIN [Suspect]
     Indication: NON-SMALL CELL LUNG CANCER
     Dosage: AUC = 5.5 DAY 1 (AUC 5.0 WITH PRIOR CHEST RADIOTHERAPY)
     Route: 042
     Dates: start: 20130806, end: 20131028
  3. GEMCITABINE HYDROCHLORIDE [Suspect]
     Indication: NON-SMALL CELL LUNG CANCER
     Dosage: 1000 MG/M2, DAYS 1 AND 8
     Route: 042
     Dates: start: 20130806, end: 20131104

REACTIONS (8)
  - Epistaxis [Recovered/Resolved]
  - Lung infection [Fatal]
  - Sepsis [Unknown]
  - Platelet count decreased [Recovering/Resolving]
  - Pulmonary oedema [Recovering/Resolving]
  - Dyspnoea [Recovering/Resolving]
  - Clostridium difficile colitis [Unknown]
  - Urinary tract infection [Unknown]
